FAERS Safety Report 10041123 (Version 2)
Quarter: 2014Q2

REPORT INFORMATION
  Report Type: Spontaneous
  Country: US (occurrence: US)
  Receive Date: 20140327
  Receipt Date: 20140423
  Transmission Date: 20141212
  Serious: No
  Sender: FDA-Public Use
  Company Number: US-009507513-1403USA007605

PATIENT
  Age: 83 Year
  Sex: Female
  Weight: 68.27 kg

DRUGS (4)
  1. OXYTROL FOR WOMEN [Suspect]
     Indication: POLLAKIURIA
     Dosage: UNK, UNKNOWN
     Route: 062
     Dates: start: 20140219, end: 20140303
  2. PROLIA [Concomitant]
     Indication: BONE DENSITY ABNORMAL
     Dosage: UNK, UNKNOWN
  3. SIMVASTATIN [Concomitant]
     Indication: BLOOD CHOLESTEROL
     Dosage: UNK, UNKNOWN
  4. VITAMIN D (UNSPECIFIED) [Concomitant]
     Indication: BONE DENSITY ABNORMAL
     Dosage: UNK, UNKNOWN

REACTIONS (2)
  - Application site erythema [Recovering/Resolving]
  - Application site pruritus [Recovering/Resolving]
